FAERS Safety Report 4313027-5 (Version None)
Quarter: 2004Q1

REPORT INFORMATION
  Report Type: 
  Country: None (occurrence: None)
  Receive Date: 20040304
  Receipt Date: 20040227
  Transmission Date: 20041129
  Serious: Yes (Other)
  Sender: FDA-Public Use
  Company Number: 200313447BCC

PATIENT
  Age: 33 Year
  Sex: Female
  Weight: 108.8633 kg

DRUGS (1)
  1. ALEVE COLD AND SINUS [Suspect]
     Dosage: 220/120 MG, ONCE, ORAL
     Route: 048
     Dates: start: 20030921

REACTIONS (6)
  - DELUSION [None]
  - EAR INFECTION [None]
  - INSOMNIA [None]
  - MUSCLE TWITCHING [None]
  - NASOPHARYNGITIS [None]
  - SUICIDAL IDEATION [None]
